FAERS Safety Report 17223928 (Version 1)
Quarter: 2019Q4

REPORT INFORMATION
  Report Type: Spontaneous
  Country: US (occurrence: US)
  Receive Date: 20191209
  Receipt Date: 20191209
  Transmission Date: 20200122
  Serious: No
  Sender: FDA-Public Use
  Company Number: None

PATIENT
  Age: 45 Year
  Sex: Male

DRUGS (1)
  1. ORENCIA [Suspect]
     Active Substance: ABATACEPT
     Dosage: OTHER
     Route: 042
     Dates: start: 201804

REACTIONS (4)
  - Product supply issue [None]
  - Gait disturbance [None]
  - Pain [None]
  - Product dose omission [None]

NARRATIVE: CASE EVENT DATE: 20191209
